FAERS Safety Report 8518292-6 (Version None)
Quarter: 2012Q3

REPORT INFORMATION
  Report Type: 
  Country: None (occurrence: None)
  Receive Date: 20120718
  Receipt Date: 20120106
  Transmission Date: 20120928
  Serious: No
  Sender: FDA-Public Use
  Company Number: US-BRISTOL-MYERS SQUIBB COMPANY-16334633

PATIENT
  Sex: Female

DRUGS (4)
  1. MULTI-VITAMINS [Concomitant]
  2. CENTRUM [Concomitant]
     Dosage: CENTRUM 21
  3. COUMADIN [Suspect]
     Dates: start: 19940101
  4. COUMADIN [Suspect]
     Dates: start: 19940101

REACTIONS (1)
  - EPISTAXIS [None]
